FAERS Safety Report 9759406 (Version 1)
Quarter: 2013Q4

REPORT INFORMATION
  Report Type: Spontaneous
  Country: US (occurrence: None)
  Receive Date: 20131216
  Receipt Date: 20131216
  Transmission Date: 20140711
  Serious: Yes (Other)
  Sender: FDA-Public Use
  Company Number: 163-21880-12103774 (0)

PATIENT
  Age: 54 Year
  Sex: Female

DRUGS (1)
  1. REVLIMID (LENALIDOMIDE)(10 MILLIGRAM, CAPSULES) [Suspect]
     Indication: LYMPHATIC DISORDER
     Dosage: 10 MG, 1 IN 1 D, PO? ? ?

REACTIONS (4)
  - Confusional state [None]
  - Malaise [None]
  - Chest pain [None]
  - Diarrhoea [None]
